FAERS Safety Report 15764584 (Version 2)
Quarter: 2020Q1

REPORT INFORMATION
  Report Type: Report from Study
  Country: CN (occurrence: CN)
  Receive Date: 20181227
  Receipt Date: 20200310
  Transmission Date: 20200409
  Serious: Yes (Hospitalization)
  Sender: FDA-Public Use
  Company Number: CN-ROCHE-2219387

PATIENT
  Age: 54 Year
  Sex: Female
  Weight: 59.5 kg

DRUGS (66)
  1. BLINDED ATEZOLIZUMAB [Suspect]
     Active Substance: ATEZOLIZUMAB
     Indication: OVARIAN CANCER
     Dosage: DATE OF MOST RECENT DOSE OF ATEZOLIZUMAB/PLACEBO PRIOR  SAE (LIVER DAMAGE) ONSET: 24/OCT/2018?DATE O
     Route: 042
     Dates: start: 20180815
  2. BEVACIZUMAB. [Suspect]
     Active Substance: BEVACIZUMAB
     Indication: OVARIAN CANCER
     Dosage: DATE OF MOST RECENT DOSE OF BEVACIZUMAB PRIOR TO SAE (LIVER DAMAGE): 24/OCT/2018 AT DOSE 870MG?DATE
     Route: 042
     Dates: start: 20180905
  3. AZASETRON HYDROCHLORIDE [Concomitant]
     Active Substance: AZASETRON HYDROCHLORIDE
     Indication: VOMITING
     Dosage: PREVENT VOMITING
     Route: 065
     Dates: start: 20180815, end: 20180815
  4. SODIUM CHLORIDE. [Concomitant]
     Active Substance: SODIUM CHLORIDE
     Indication: VOMITING
     Dosage: PREVENT VOMITING
     Route: 065
     Dates: start: 20180815, end: 20180815
  5. CALCIUM GLUCONATE. [Concomitant]
     Active Substance: CALCIUM GLUCONATE
     Indication: HYPOCALCAEMIA
     Dosage: PREVENTION OF HYPOCALCEMIA
     Route: 065
     Dates: start: 20180815, end: 20180815
  6. CALCIUM GLUCONATE. [Concomitant]
     Active Substance: CALCIUM GLUCONATE
     Route: 065
     Dates: start: 20180905, end: 20180905
  7. SOPHORA FLAVESCENS [Concomitant]
     Indication: LEUKOPENIA
     Route: 065
     Dates: start: 20180818
  8. LACTULOSE. [Concomitant]
     Active Substance: LACTULOSE
     Indication: CONSTIPATION
     Route: 048
     Dates: start: 20180907, end: 20180907
  9. INVERT SUGAR [Concomitant]
     Active Substance: INVERT SUGAR
     Route: 065
     Dates: start: 20181024, end: 20181024
  10. PEGYLATED RECOMBINANT HUMAN GRANULOCYTE COLONY STIMULATING FACTOR [Concomitant]
     Route: 065
     Dates: start: 20181120, end: 20181120
  11. PACLITAXEL. [Suspect]
     Active Substance: PACLITAXEL
     Indication: OVARIAN CANCER
     Dosage: DATE OF MOST RECENT DOSE OF PACLITAXEL PRIOR TO AE AND SAE (LIVER DAMAGE) ONSET 24/OCT/2018?DOSE OF
     Route: 042
     Dates: start: 20180815
  12. LANSOPRAZOLE. [Concomitant]
     Active Substance: LANSOPRAZOLE
     Dosage: PREVENT STOMACH INJURY
     Route: 065
     Dates: start: 20180905, end: 20180905
  13. AZASETRON HYDROCHLORIDE [Concomitant]
     Active Substance: AZASETRON HYDROCHLORIDE
     Route: 065
     Dates: start: 20181024, end: 20181024
  14. AZASETRON HYDROCHLORIDE [Concomitant]
     Active Substance: AZASETRON HYDROCHLORIDE
     Route: 065
     Dates: start: 20181122, end: 20181122
  15. SODIUM CHLORIDE. [Concomitant]
     Active Substance: SODIUM CHLORIDE
     Route: 065
     Dates: start: 20180905, end: 20180905
  16. SODIUM CHLORIDE. [Concomitant]
     Active Substance: SODIUM CHLORIDE
     Route: 065
     Dates: start: 20181024, end: 20181024
  17. POTASSIUM CHLORIDE. [Concomitant]
     Active Substance: POTASSIUM CHLORIDE
     Route: 065
     Dates: start: 20180905, end: 20180905
  18. POVIDONE-IODINE. [Concomitant]
     Active Substance: POVIDONE-IODINE
     Indication: CENTRAL VENOUS CATHETERISATION
     Dosage: PICC INTUBATION
     Route: 065
     Dates: start: 20180815, end: 20180815
  19. DEXAMETHASONE SODIUM PHOSPHATE. [Concomitant]
     Active Substance: DEXAMETHASONE SODIUM PHOSPHATE
     Indication: HYPERSENSITIVITY
     Dosage: PREVENT ALLERGIC REACTION
     Route: 065
     Dates: start: 20180905, end: 20180905
  20. ZIZIPHUS JUJUBA [Concomitant]
     Indication: LEUKOPENIA
     Route: 065
     Dates: start: 20180818, end: 20190424
  21. VITAMIN D3 [Concomitant]
     Active Substance: CHOLECALCIFEROL
     Indication: MINERAL SUPPLEMENTATION
     Route: 065
     Dates: start: 20180818, end: 20190118
  22. BUPLEURUM CHINENSE, ROOT [Concomitant]
     Dosage: LIVER PROTECTION
     Route: 065
  23. FERROUS LACTATE [Concomitant]
     Active Substance: FERROUS LACTATE
     Indication: ANAEMIA
     Route: 065
     Dates: start: 20180831, end: 20180904
  24. AMIFOSTINE. [Concomitant]
     Active Substance: AMIFOSTINE
     Dosage: PREVENT CELL MEMBRANE DAMAGE
     Route: 065
     Dates: start: 20180926, end: 20180926
  25. VITAMIN B6 [Concomitant]
     Active Substance: PYRIDOXINE HYDROCHLORIDE
     Dosage: SUPPLEMENT NUTRITION
     Route: 065
     Dates: start: 20180926, end: 20180926
  26. DEXAMETHASONE ACETATE [Concomitant]
     Active Substance: DEXAMETHASONE ACETATE
     Route: 065
     Dates: start: 20181023, end: 20181024
  27. POTASSIUM CHLORIDE. [Concomitant]
     Active Substance: POTASSIUM CHLORIDE
     Route: 065
     Dates: start: 20180926, end: 20180926
  28. POTASSIUM CHLORIDE. [Concomitant]
     Active Substance: POTASSIUM CHLORIDE
     Route: 065
     Dates: start: 20181122, end: 20181122
  29. FRAXIPARINE [Concomitant]
     Active Substance: NADROPARIN CALCIUM
     Indication: THROMBOSIS
     Route: 065
     Dates: start: 20180814, end: 20180817
  30. RIVAROXABAN [Concomitant]
     Active Substance: RIVAROXABAN
     Route: 065
     Dates: start: 20180818, end: 20181023
  31. VIGNA RADIATA [Concomitant]
     Dosage: LIVER PROTECTION
     Route: 065
  32. THROMBOPOIETIN [Concomitant]
     Active Substance: THROMBOPOIETIN
     Indication: THROMBOCYTOPENIA
     Route: 065
     Dates: start: 20181013, end: 20181021
  33. DEXAMETHASONE ACETATE [Concomitant]
     Active Substance: DEXAMETHASONE ACETATE
     Route: 048
     Dates: start: 20180904, end: 20180905
  34. LANSOPRAZOLE. [Concomitant]
     Active Substance: LANSOPRAZOLE
     Route: 065
     Dates: start: 20180926, end: 20180926
  35. POTASSIUM CHLORIDE. [Concomitant]
     Active Substance: POTASSIUM CHLORIDE
     Indication: BLOOD POTASSIUM DECREASED
     Dosage: PREVENT LOW POTASSIUM
     Route: 065
     Dates: start: 20180815, end: 20180815
  36. VITAMIN C [Concomitant]
     Active Substance: ASCORBIC ACID
     Dosage: SUPPLEMENT NUTRITION
     Route: 065
     Dates: start: 20180926, end: 20180926
  37. ESTAZOLAM. [Concomitant]
     Active Substance: ESTAZOLAM
     Route: 065
     Dates: start: 20181024, end: 20181024
  38. RECOMBINANT HUMAN INTERLEUKIN-11 [Concomitant]
     Active Substance: OPRELVEKIN
     Route: 065
     Dates: start: 20181204, end: 20181217
  39. CARBOPLATIN. [Suspect]
     Active Substance: CARBOPLATIN
     Indication: OVARIAN CANCER
     Dosage: DATE OF MOST RECENT DOSE OF CARBOPLATIN PRIOR TO AE AND SAE (LIVER DAMAGE) ONSET 24/OCT/2018?DOSE OF
     Route: 042
     Dates: start: 20180815
  40. LANSOPRAZOLE. [Concomitant]
     Active Substance: LANSOPRAZOLE
     Indication: GASTROINTESTINAL INJURY
     Dosage: PREVENT STOMACH INJURY
     Route: 065
     Dates: start: 20180815, end: 20180815
  41. AZASETRON HYDROCHLORIDE [Concomitant]
     Active Substance: AZASETRON HYDROCHLORIDE
     Route: 065
     Dates: start: 20180926, end: 20180926
  42. POTASSIUM CHLORIDE. [Concomitant]
     Active Substance: POTASSIUM CHLORIDE
     Route: 065
     Dates: start: 20181024, end: 20181024
  43. CALCIUM CARBONATE. [Concomitant]
     Active Substance: CALCIUM CARBONATE
     Indication: MINERAL SUPPLEMENTATION
     Route: 065
     Dates: start: 20180818, end: 20190118
  44. ISATIS TINCTORIA ROOT. [Concomitant]
     Active Substance: ISATIS TINCTORIA ROOT
     Dosage: LIVER PROTECTION
     Route: 065
  45. BICYCLOL [Concomitant]
     Active Substance: BICYCLOL
     Dosage: LIVER PROTECTION
     Route: 065
     Dates: start: 20180912, end: 20190509
  46. ESTAZOLAM. [Concomitant]
     Active Substance: ESTAZOLAM
     Route: 065
     Dates: start: 20181122, end: 20181122
  47. RECOMBINANT HUMAN INTERLEUKIN-11 [Concomitant]
     Active Substance: OPRELVEKIN
     Indication: THROMBOCYTOPENIA
     Route: 065
     Dates: start: 20181112, end: 20181114
  48. DEXAMETHASONE ACETATE [Concomitant]
     Active Substance: DEXAMETHASONE ACETATE
     Route: 065
     Dates: start: 20181121, end: 20181122
  49. LANSOPRAZOLE. [Concomitant]
     Active Substance: LANSOPRAZOLE
     Route: 065
     Dates: start: 20181122, end: 20181122
  50. SODIUM CHLORIDE. [Concomitant]
     Active Substance: SODIUM CHLORIDE
     Route: 065
     Dates: start: 20181122, end: 20181122
  51. LIDOCAINE HYDROCHLORIDE. [Concomitant]
     Active Substance: LIDOCAINE HYDROCHLORIDE
     Indication: CENTRAL VENOUS CATHETERISATION
     Dosage: PICC INCUBATION
     Route: 065
     Dates: start: 20180815, end: 20180815
  52. DEXAMETHASONE SODIUM PHOSPHATE. [Concomitant]
     Active Substance: DEXAMETHASONE SODIUM PHOSPHATE
     Route: 065
     Dates: start: 20181024, end: 20181024
  53. GLYCERIN [GLYCEROL] [Concomitant]
     Indication: CONSTIPATION
     Route: 065
     Dates: start: 20180908, end: 20180908
  54. GLYCYRRHIZIN [GLYCYRRHIZA GLABRA] [Concomitant]
     Active Substance: GLYCYRRHIZA GLABRA\HERBALS
     Route: 065
     Dates: start: 20181120, end: 20181123
  55. DEXAMETHASONE ACETATE [Concomitant]
     Active Substance: DEXAMETHASONE ACETATE
     Indication: HYPERSENSITIVITY
     Dosage: PREVENT ALLERGIC REACTION
     Route: 048
     Dates: start: 20180814, end: 20180815
  56. LANSOPRAZOLE. [Concomitant]
     Active Substance: LANSOPRAZOLE
     Route: 065
     Dates: start: 20181024, end: 20181024
  57. AZASETRON HYDROCHLORIDE [Concomitant]
     Active Substance: AZASETRON HYDROCHLORIDE
     Route: 065
     Dates: start: 20180905, end: 20180905
  58. SALVIA MILTIORRHIZA [Concomitant]
     Active Substance: HERBALS
     Indication: LEUKOPENIA
     Route: 065
     Dates: start: 20180818
  59. LEUCOGEN [Concomitant]
     Active Substance: LEUCOGEN
     Indication: THROMBOCYTOPENIA
     Route: 065
     Dates: start: 20181012
  60. DEXAMETHASONE ACETATE [Concomitant]
     Active Substance: DEXAMETHASONE ACETATE
     Route: 048
     Dates: start: 20180925, end: 20180926
  61. CALCIUM GLUCONATE. [Concomitant]
     Active Substance: CALCIUM GLUCONATE
     Route: 065
     Dates: start: 20181025, end: 20181025
  62. EPIMEDIUM [Concomitant]
     Indication: LEUKOPENIA
     Route: 065
     Dates: start: 20180818
  63. ASTRAGALUS SPP. [Concomitant]
     Indication: LEUKOPENIA
     Route: 065
     Dates: start: 20180818
  64. BILE SALTS [Concomitant]
     Dosage: LIVER PROTECTION
     Route: 065
  65. AMIFOSTINE. [Concomitant]
     Active Substance: AMIFOSTINE
     Route: 065
     Dates: start: 20181024, end: 20181024
  66. AMINO ACIDS NOS [Concomitant]
     Active Substance: AMINO ACIDS, SOURCE UNSPECIFIED
     Dosage: SUPPLEMENTARY AMINO ACID
     Route: 065
     Dates: start: 20181024, end: 20181024

REACTIONS (2)
  - Liver injury [Recovered/Resolved]
  - Neutrophil count decreased [Recovered/Resolved]

NARRATIVE: CASE EVENT DATE: 20181109
